FAERS Safety Report 24712890 (Version 2)
Quarter: 2024Q4

REPORT INFORMATION
  Report Type: Report from Study
  Country: US (occurrence: US)
  Receive Date: 20241209
  Receipt Date: 20241221
  Transmission Date: 20250115
  Serious: Yes (Hospitalization, Other)
  Sender: ABBVIE
  Company Number: US-ABBVIE-6035710

PATIENT
  Age: 95 Year
  Sex: Female

DRUGS (1)
  1. IMBRUVICA [Suspect]
     Active Substance: IBRUTINIB
     Indication: Monoclonal gammopathy
     Dosage: TIME INTERVAL: 0.33333333 DAYS: LAST ADMIN DATE: 2024
     Route: 048
     Dates: start: 20240625

REACTIONS (7)
  - Surgery [Unknown]
  - Joint swelling [Unknown]
  - Acne [Unknown]
  - Pruritus [Unknown]
  - Scab [Unknown]
  - Alopecia [Unknown]
  - Weight decreased [Unknown]

NARRATIVE: CASE EVENT DATE: 20240101
